FAERS Safety Report 5071914-7 (Version None)
Quarter: 2006Q3

REPORT INFORMATION
  Report Type: 
  Country: None (occurrence: None)
  Receive Date: 20060804
  Receipt Date: 20060725
  Transmission Date: 20061208
  Serious: Yes (Other)
  Sender: FDA-Public Use
  Company Number: HK-ABBOTT-06P-075-0338842-00

PATIENT
  Age: 33 Year
  Sex: Female

DRUGS (7)
  1. CYCLOSPORINE [Suspect]
     Indication: IMMUNOSUPPRESSION
     Dosage: NOT REPORTED
  2. PREDNISOLONE [Suspect]
     Indication: IMMUNOSUPPRESSION
     Dosage: TAPERED OFF
  3. PREDNISOLONE [Suspect]
     Dosage: NOT REPORTED
  4. AZATHIOPRINE SODIUM [Suspect]
     Indication: IMMUNOSUPPRESSION
  5. SIROLIMUS [Suspect]
     Indication: IMMUNOSUPPRESSION
     Dosage: NOT REPORTED
  6. METHOTREXATE [Suspect]
     Indication: IMMUNOSUPPRESSION
     Dosage: NOT REPORTED
  7. MYCOPHENOLATE MOFETIL [Suspect]
     Indication: IMMUNOSUPPRESSION
     Dosage: NOT REPORTED

REACTIONS (9)
  - ASPERGILLOSIS [None]
  - DISEASE RECURRENCE [None]
  - HAEMODIALYSIS [None]
  - LYMPHOPROLIFERATIVE DISORDER [None]
  - MYELODYSPLASTIC SYNDROME [None]
  - PNEUMONIA [None]
  - PSEUDOMONAS INFECTION [None]
  - RENAL FAILURE CHRONIC [None]
  - TRANSPLANT REJECTION [None]
